FAERS Safety Report 6767558-9 (Version None)
Quarter: 2010Q2

REPORT INFORMATION
  Report Type: 
  Country: None (occurrence: None)
  Receive Date: 20100614
  Receipt Date: 20100603
  Transmission Date: 20101027
  Serious: Yes (Other)
  Sender: FDA-Public Use
  Company Number: FR-AMGEN-US376563

PATIENT
  Age: 8 Year
  Sex: Female

DRUGS (2)
  1. ENBREL [Suspect]
     Indication: JUVENILE ARTHRITIS
     Route: 058
     Dates: start: 20070101, end: 20090101
  2. ENBREL [Suspect]
     Route: 058
     Dates: start: 20090101, end: 20100226

REACTIONS (2)
  - DEMYELINATION [None]
  - DISTURBANCE IN ATTENTION [None]
